FAERS Safety Report 7632267-0 (Version None)
Quarter: 2011Q3

REPORT INFORMATION
  Report Type: 
  Country: None (occurrence: None)
  Receive Date: 20110725
  Receipt Date: 20110719
  Transmission Date: 20111222
  Serious: Yes (Hospitalization)
  Sender: FDA-Public Use
  Company Number: JP-ABBOTT-10P-087-0687460-00

PATIENT
  Sex: Male
  Weight: 52 kg

DRUGS (10)
  1. HUMIRA [Suspect]
     Indication: CROHN'S DISEASE
     Route: 058
     Dates: start: 20101116, end: 20101116
  2. FLUNITRAZEPAM [Concomitant]
     Indication: INSOMNIA
  3. MESALAMINE [Concomitant]
     Indication: CROHN'S DISEASE
     Route: 048
  4. MERCAPTOPURINE [Concomitant]
     Indication: CROHN'S DISEASE
  5. LACTOMIN [Concomitant]
     Indication: CROHN'S DISEASE
  6. ETIZOLAM [Concomitant]
     Indication: INSOMNIA
  7. CHINESE HERBAL MEDICINE [Concomitant]
     Indication: CROHN'S DISEASE
  8. KETOPROFEN [Concomitant]
     Indication: BACK PAIN
  9. BIFIDOBACTERIUM HYDRATE [Concomitant]
     Indication: PRODUCT USED FOR UNKNOWN INDICATION
  10. BROTIZOLAM [Concomitant]
     Indication: INSOMNIA

REACTIONS (2)
  - MALAISE [None]
  - HEADACHE [None]
